FAERS Safety Report 19653119 (Version 5)
Quarter: 2021Q3

REPORT INFORMATION
  Report Type: Spontaneous
  Country: US (occurrence: US)
  Receive Date: 20210803
  Receipt Date: 20210928
  Transmission Date: 20211014
  Serious: Yes (Other)
  Sender: FDA-Public Use
  Company Number: US-PFIZER INC-202100934917

PATIENT
  Age: 72 Year
  Sex: Female

DRUGS (3)
  1. IBRANCE [Suspect]
     Active Substance: PALBOCICLIB
     Dosage: 125 MG
     Dates: start: 20210720
  2. IBRANCE [Suspect]
     Active Substance: PALBOCICLIB
     Indication: BREAST CANCER FEMALE
     Dosage: 125 MG
     Dates: start: 20210715
  3. IBRANCE [Suspect]
     Active Substance: PALBOCICLIB
     Dosage: 125 MG
     Dates: start: 20210716, end: 20210820

REACTIONS (13)
  - Plague [Unknown]
  - Fatigue [Unknown]
  - Epistaxis [Recovering/Resolving]
  - Neoplasm progression [Unknown]
  - Dyspnoea [Unknown]
  - Mouth haemorrhage [Recovered/Resolved]
  - Tongue injury [Unknown]
  - Dyspnoea [Unknown]
  - Nausea [Not Recovered/Not Resolved]
  - Pollakiuria [Unknown]
  - Discomfort [Unknown]
  - Pain in extremity [Unknown]
  - Mouth injury [Unknown]

NARRATIVE: CASE EVENT DATE: 2021
